FAERS Safety Report 5041743-9 (Version None)
Quarter: 2006Q2

REPORT INFORMATION
  Report Type: 
  Country: None (occurrence: None)
  Receive Date: 20060630
  Receipt Date: 20060621
  Transmission Date: 20061013
  Serious: Yes (Hospitalization, Other)
  Sender: FDA-Public Use
  Company Number: 2005142180

PATIENT
  Age: 77 Year
  Sex: Female
  Weight: 79.3795 kg

DRUGS (10)
  1. BEXTRA [Suspect]
     Indication: INFLAMMATION
     Dosage: 20 MG (20 MG, 1 IN 1 D); ORAL
     Route: 048
     Dates: start: 20021127
  2. NIFEDICAL (NIFEDIPINE) [Concomitant]
  3. PROPAFENONE HCL [Concomitant]
  4. ALLOPURINOL [Concomitant]
  5. POTASSIUM CHLORIDE [Concomitant]
  6. AMILORIDE HCL W/HYDROCHLOROTHIAZIDE (AMILORIDE HYDROCHLORIDE, HYDROCHL [Concomitant]
  7. TRICOR [Concomitant]
  8. CALCIUM GLUCONATE [Concomitant]
  9. ASPIRIN [Concomitant]
  10. PRAVACHOL [Concomitant]

REACTIONS (3)
  - ANAEMIA [None]
  - CEREBRAL INFARCTION [None]
  - CEREBROVASCULAR ACCIDENT [None]
